FAERS Safety Report 15602416 (Version 1)
Quarter: 2018Q4

REPORT INFORMATION
  Report Type: Spontaneous
  Country: US (occurrence: US)
  Receive Date: 20181109
  Receipt Date: 20181109
  Transmission Date: 20190205
  Serious: No
  Sender: FDA-Public Use
  Company Number: US-JIANGSU HENGRUI MEDICINE CO., LTD.-2058652

PATIENT
  Age: 24 Year
  Sex: Male

DRUGS (3)
  1. TISAGENLECLEUCEL. [Concomitant]
     Active Substance: TISAGENLECLEUCEL
  2. CYCLOPHOSPHAMIDE. [Suspect]
     Active Substance: CYCLOPHOSPHAMIDE
     Indication: LYMPHOPROLIFERATIVE DISORDER
  3. FLUDARABINE [Concomitant]
     Active Substance: FLUDARABINE PHOSPHATE

REACTIONS (3)
  - Blood pressure systolic [None]
  - Acute lymphocytic leukaemia [None]
  - Blood glucose increased [None]
